FAERS Safety Report 18678843 (Version 1)
Quarter: 2020Q4

REPORT INFORMATION
  Report Type: Spontaneous
  Country: US (occurrence: US)
  Receive Date: 20201229
  Receipt Date: 20201229
  Transmission Date: 20210114
  Serious: No
  Sender: FDA-Public Use
  Company Number: US-TAKEDA-2020TUS061002

PATIENT
  Age: 45 Year
  Sex: Male
  Weight: 117.01 kg

DRUGS (17)
  1. METFORMIN [Concomitant]
     Active Substance: METFORMIN HYDROCHLORIDE
     Dosage: UNK
  2. MULTIVITAMINS [VITAMINS NOS] [Concomitant]
     Active Substance: VITAMINS
     Dosage: UNK
  3. SENNA LAXATIVE [Concomitant]
     Active Substance: SENNOSIDES
     Dosage: UNK
  4. TRIAMCINOLONE [Concomitant]
     Active Substance: TRIAMCINOLONE
     Dosage: UNK
  5. ASPIRIN [ACETYLSALICYLIC ACID] [Concomitant]
     Active Substance: ASPIRIN
     Dosage: UNK
  6. LITHIUM CARBONATE. [Concomitant]
     Active Substance: LITHIUM CARBONATE
  7. VALACICLOVIR [Concomitant]
     Active Substance: VALACYCLOVIR HYDROCHLORIDE
     Dosage: UNK
  8. ACETAMINOPHEN. [Concomitant]
     Active Substance: ACETAMINOPHEN
     Dosage: UNK
  9. LISINOPRIL. [Concomitant]
     Active Substance: LISINOPRIL
     Dosage: UNK
  10. NINLARO [Suspect]
     Active Substance: IXAZOMIB CITRATE
     Indication: PLASMA CELL MYELOMA
     Dosage: 4 MILLIGRAM, 1/WEEK
     Route: 048
     Dates: start: 20170919
  11. HALDOL [Concomitant]
     Active Substance: HALOPERIDOL
     Dosage: UNK
  12. OMEPRAZOLE. [Concomitant]
     Active Substance: OMEPRAZOLE
     Dosage: UNK
  13. BENZTROPINE [BENZATROPINE] [Concomitant]
     Active Substance: BENZTROPINE
     Dosage: UNK
  14. NYSTATIN. [Concomitant]
     Active Substance: NYSTATIN
  15. COSENTYX [Concomitant]
     Active Substance: SECUKINUMAB
     Dosage: UNK
  16. EPINEPHRINE. [Concomitant]
     Active Substance: EPINEPHRINE
     Dosage: UNK
  17. PROCAINE PENICILLIN G [Concomitant]
     Active Substance: PENICILLIN G PROCAINE
     Dosage: UNK

REACTIONS (1)
  - Nausea [Unknown]

NARRATIVE: CASE EVENT DATE: 20201224
